FAERS Safety Report 6853874-9 (Version None)
Quarter: 2010Q3

REPORT INFORMATION
  Report Type: 
  Country: None (occurrence: None)
  Receive Date: 20100717
  Receipt Date: 20071221
  Transmission Date: 20110219
  Serious: No
  Sender: FDA-Public Use
  Company Number: US-PFIZER INC-2007108459

PATIENT
  Sex: Female
  Weight: 103.63 kg

DRUGS (2)
  1. CHANTIX [Suspect]
     Indication: SMOKING CESSATION THERAPY
     Dates: start: 20071101
  2. INSULIN [Concomitant]
     Indication: DIABETES MELLITUS

REACTIONS (2)
  - MIGRAINE [None]
  - NAUSEA [None]
